FAERS Safety Report 4415492-1 (Version None)
Quarter: 2004Q3

REPORT INFORMATION
  Report Type: 
  Country: None (occurrence: None)
  Receive Date: 20040730
  Receipt Date: 20040721
  Transmission Date: 20050211
  Serious: Yes (Other)
  Sender: FDA-Public Use
  Company Number: 2004224874US

PATIENT
  Age: 78 Year
  Sex: Female

DRUGS (3)
  1. PROVERA [Suspect]
     Dates: start: 19880301, end: 19981201
  2. PREMARIN [Suspect]
     Dates: start: 19880301, end: 19981201
  3. PREMPRO [Suspect]
     Dates: start: 19981201, end: 19980401

REACTIONS (1)
  - BREAST CANCER FEMALE [None]
